FAERS Safety Report 6925146-5 (Version None)
Quarter: 2010Q3

REPORT INFORMATION
  Report Type: 
  Country: None (occurrence: None)
  Receive Date: 20100816
  Receipt Date: 20100722
  Transmission Date: 20110219
  Serious: Yes (Disabling)
  Sender: FDA-Public Use
  Company Number: DK-BRACCO-000030

PATIENT
  Sex: Female
  Weight: 95 kg

DRUGS (16)
  1. PROHANCE [Suspect]
     Indication: NUCLEAR MAGNETIC RESONANCE IMAGING
     Route: 042
     Dates: start: 20031128, end: 20031128
  2. SANDIMMUNE [Concomitant]
  3. FLAMAZINE [Concomitant]
  4. REMICADE [Concomitant]
  5. CORTICOSTEROIDS [Concomitant]
     Route: 003
  6. DAPSON [Concomitant]
  7. PROTOPIC [Concomitant]
  8. PREDNISOLONE [Concomitant]
     Dates: start: 20031105
  9. ANTIBIOTICS [Concomitant]
  10. DOLOL [Concomitant]
     Dates: start: 20031105
  11. ACETAMINOPHEN [Concomitant]
     Dates: start: 20031105
  12. PRIMPERAN TAB [Concomitant]
     Route: 054
  13. HEPARIN [Concomitant]
  14. VANCOMYCIN [Concomitant]
     Dates: start: 20031111
  15. FOSAMAX [Concomitant]
     Route: 048
     Dates: start: 20031114
  16. MAREVAN [Concomitant]
     Dosage: 3-4 A DAY
     Route: 048
     Dates: start: 20031105

REACTIONS (1)
  - NEPHROGENIC SYSTEMIC FIBROSIS [None]
